FAERS Safety Report 25768079 (Version 1)
Quarter: 2025Q3

REPORT INFORMATION
  Report Type: Spontaneous
  Country: US (occurrence: US)
  Receive Date: 20250905
  Receipt Date: 20250905
  Transmission Date: 20251021
  Serious: No
  Sender: DOMPE FARMACEUTICI
  Company Number: US-FARMAPROD-202505-1740

PATIENT
  Age: 63 Year
  Sex: Female
  Weight: 58.6 kg

DRUGS (31)
  1. OXERVATE [Suspect]
     Active Substance: CENEGERMIN-BKBJ
     Indication: Neurotrophic keratopathy
     Route: 047
     Dates: start: 20250520
  2. CRANBERRY [Concomitant]
     Active Substance: CRANBERRY
  3. REFRESH TEARS PF [Concomitant]
     Active Substance: CARBOXYMETHYLCELLULOSE SODIUM\GLYCERIN
  4. SYSTANE (HYPROMELLOSE 2910 (4000 MPA.S)) [Concomitant]
     Active Substance: HYPROMELLOSE 2910 (4000 MPA.S)
  5. NAPROXEN [Concomitant]
     Active Substance: NAPROXEN
  6. TIMOLOL MALEATE [Concomitant]
     Active Substance: TIMOLOL MALEATE
  7. FLUCONAZOLE [Concomitant]
     Active Substance: FLUCONAZOLE
  8. DICLOFENAC SODIUM [Concomitant]
     Active Substance: DICLOFENAC SODIUM
  9. MOXIFLOXACIN [Concomitant]
     Active Substance: MOXIFLOXACIN
  10. AZITHROMYCIN [Concomitant]
     Active Substance: AZITHROMYCIN
  11. MONTELUKAST SODIUM [Concomitant]
     Active Substance: MONTELUKAST SODIUM
  12. FLUTICASONE FUROATE\SALMETEROL XINAFOATE [Concomitant]
     Active Substance: FLUTICASONE FUROATE\SALMETEROL XINAFOATE
  13. LORAZEPAM [Concomitant]
     Active Substance: LORAZEPAM
  14. JARDIANCE [Concomitant]
     Active Substance: EMPAGLIFLOZIN
  15. METFORMIN HYDROCHLORIDE [Concomitant]
     Active Substance: METFORMIN HYDROCHLORIDE
  16. ROSUVASTATIN CALCIUM [Concomitant]
     Active Substance: ROSUVASTATIN CALCIUM
  17. GABAPENTIN [Concomitant]
     Active Substance: GABAPENTIN
  18. VALACYCLOVIR [Concomitant]
     Active Substance: VALACYCLOVIR HYDROCHLORIDE
  19. SIROLIMUS [Concomitant]
     Active Substance: SIROLIMUS
  20. CREON [Concomitant]
     Active Substance: PANCRELIPASE AMYLASE\PANCRELIPASE LIPASE\PANCRELIPASE PROTEASE
  21. FAMOTIDINE [Concomitant]
     Active Substance: FAMOTIDINE
  22. BETIMOL [Concomitant]
     Active Substance: TIMOLOL
  23. ASPIRIN [Concomitant]
     Active Substance: ASPIRIN
  24. LIDOCAINE [Concomitant]
     Active Substance: LIDOCAINE
  25. POLYMYXIN B SULFATE\TRIMETHOPRIM [Concomitant]
     Active Substance: POLYMYXIN B SULFATE\TRIMETHOPRIM
  26. ALBUTEROL SULFATE [Concomitant]
     Active Substance: ALBUTEROL SULFATE
  27. AMOXICILLIN [Concomitant]
     Active Substance: AMOXICILLIN
  28. FLUTICASONE PROPIONATE [Concomitant]
     Active Substance: FLUTICASONE PROPIONATE
  29. ESTRADIOL [Concomitant]
     Active Substance: ESTRADIOL
  30. HYDROCORTISONE [Concomitant]
     Active Substance: HYDROCORTISONE
  31. DORZOLAMIDE AND TIMOLOL [Concomitant]
     Active Substance: DORZOLAMIDE HYDROCHLORIDE\TIMOLOL MALEATE

REACTIONS (1)
  - Eye pain [Unknown]

NARRATIVE: CASE EVENT DATE: 20250521
